FAERS Safety Report 20945840 (Version 1)
Quarter: 2022Q2

REPORT INFORMATION
  Report Type: Report from Study
  Country: US (occurrence: US)
  Receive Date: 20220610
  Receipt Date: 20220610
  Transmission Date: 20220721
  Serious: Yes (Other)
  Sender: FDA-Public Use
  Company Number: US-Vifor (International) Inc.-VIT-2022-03974

PATIENT
  Sex: Male
  Weight: 136.5 kg

DRUGS (4)
  1. VELPHORO [Suspect]
     Active Substance: SUCROFERRIC OXYHYDROXIDE
     Indication: Hyperphosphataemia
     Route: 048
     Dates: start: 202204, end: 2022
  2. VELPHORO [Suspect]
     Active Substance: SUCROFERRIC OXYHYDROXIDE
     Dosage: 1 TAB DAILY WITH LARGEST MEAL
     Route: 048
     Dates: start: 2022
  3. SEVELAMER CARBONATE [Concomitant]
     Active Substance: SEVELAMER CARBONATE
     Dosage: 3 SEVELAMER CARBONATE WITH THE THIRD MEAL
  4. IRON [Concomitant]
     Active Substance: IRON

REACTIONS (1)
  - Constipation [Unknown]
